FAERS Safety Report 9458205 (Version 7)
Quarter: 2013Q4

REPORT INFORMATION
  Report Type: Spontaneous
  Country: US (occurrence: US)
  Receive Date: 20130814
  Receipt Date: 20131105
  Transmission Date: 20140711
  Serious: No
  Sender: FDA-Public Use
  Company Number: US-PFIZER INC-2013233054

PATIENT
  Age: 47 Year
  Sex: Male
  Weight: 99.77 kg

DRUGS (6)
  1. NARDIL [Suspect]
     Indication: POST-TRAUMATIC STRESS DISORDER
     Dosage: 45 MG, 2X/DAY
     Route: 048
     Dates: start: 199304
  2. NARDIL [Suspect]
     Indication: DEPRESSION
     Dosage: UNK
  3. NARDIL [Suspect]
     Indication: SOCIAL PHOBIA
     Dosage: UNK
  4. NARDIL [Suspect]
     Indication: GENERALISED ANXIETY DISORDER
  5. DIAZEPAM [Concomitant]
     Dosage: 10 MG, 2X/DAY
  6. VALIUM [Concomitant]
     Dosage: 10 MG, 2X/DAY

REACTIONS (6)
  - Poor quality drug administered [Unknown]
  - Drug ineffective [Unknown]
  - Product odour abnormal [Unknown]
  - Headache [Recovered/Resolved]
  - Decreased appetite [Recovered/Resolved]
  - Nightmare [Recovered/Resolved]
